FAERS Safety Report 6811172-3 (Version None)
Quarter: 2010Q2

REPORT INFORMATION
  Report Type: 
  Country: None (occurrence: None)
  Receive Date: 20100630
  Receipt Date: 20090713
  Transmission Date: 20101027
  Serious: No
  Sender: FDA-Public Use
  Company Number: US-AMGEN-KDL355780

PATIENT
  Sex: Female
  Weight: 55.8 kg

DRUGS (6)
  1. PROCRIT [Suspect]
     Indication: ANAEMIA
     Dates: start: 20090201
  2. UNSPECIFIED MEDICATION [Concomitant]
  3. DIGOXIN [Concomitant]
  4. ZOLOFT [Concomitant]
  5. LIPITOR [Concomitant]
  6. PLAVIX [Concomitant]

REACTIONS (1)
  - HAEMOGLOBIN DECREASED [None]
